FAERS Safety Report 9952876 (Version 1)
Quarter: 2014Q1

REPORT INFORMATION
  Report Type: Report from Study
  Country: US (occurrence: US)
  Receive Date: 20140304
  Receipt Date: 20140304
  Transmission Date: 20141002
  Serious: No
  Sender: FDA-Public Use
  Company Number: US-ABBVIE-13P-163-1075689-00

PATIENT
  Age: 66 Year
  Sex: Female
  Weight: 81.72 kg

DRUGS (7)
  1. HUMIRA [Suspect]
     Indication: RHEUMATOID ARTHRITIS
     Dates: start: 20130130
  2. METHOTREXATE [Suspect]
     Indication: RHEUMATOID ARTHRITIS
  3. ALEVE [Concomitant]
     Indication: PAIN
  4. FOSAMAX [Concomitant]
     Indication: OSTEOPOROSIS
  5. ADVAIR [Concomitant]
     Indication: ASTHMA
  6. FERROUS SULFATE [Concomitant]
     Indication: MINERAL SUPPLEMENTATION
  7. VITAMIN D2 [Concomitant]
     Indication: VITAMIN D DECREASED

REACTIONS (5)
  - Musculoskeletal pain [Recovered/Resolved]
  - Pain in extremity [Recovered/Resolved]
  - Arthralgia [Recovering/Resolving]
  - Arthralgia [Recovered/Resolved]
  - Rheumatoid arthritis [Recovered/Resolved]
